FAERS Safety Report 14129292 (Version 3)
Quarter: 2017Q4

REPORT INFORMATION
  Report Type: Spontaneous
  Country: US (occurrence: US)
  Receive Date: 20171026
  Receipt Date: 20171222
  Transmission Date: 20180321
  Serious: Yes (Hospitalization)
  Sender: FDA-Public Use
  Company Number: US-BAYER-2017-175523

PATIENT
  Age: 69 Year
  Sex: Male
  Weight: 80.4 kg

DRUGS (12)
  1. XARELTO [Suspect]
     Active Substance: RIVAROXABAN
     Indication: ATRIAL FIBRILLATION
  2. AMIODARONE [Concomitant]
     Active Substance: AMIODARONE
     Indication: ANGIOPATHY
     Dosage: 200 MG, QD
     Route: 048
     Dates: start: 20170502
  3. CARVEDILOL. [Concomitant]
     Active Substance: CARVEDILOL
     Indication: ANGIOPATHY
     Dosage: 6.25 MG, BID
     Route: 048
     Dates: start: 20170410
  4. XARELTO [Suspect]
     Active Substance: RIVAROXABAN
     Indication: ATRIAL FIBRILLATION
  5. ATORVASTATIN [Concomitant]
     Active Substance: ATORVASTATIN
     Indication: ANGIOPATHY
     Dosage: 80 MG, UNK
     Route: 048
     Dates: start: 20170410
  6. XARELTO [Suspect]
     Active Substance: RIVAROXABAN
     Indication: ATRIAL FIBRILLATION
  7. AMIODARONE [Concomitant]
     Active Substance: AMIODARONE
     Indication: ATRIAL FIBRILLATION
  8. LISINOPRIL. [Concomitant]
     Active Substance: LISINOPRIL
     Indication: ANGIOPATHY
     Dosage: 25 MG, QD
     Route: 048
     Dates: start: 20170410
  9. XARELTO [Suspect]
     Active Substance: RIVAROXABAN
     Indication: CEREBROVASCULAR ACCIDENT PROPHYLAXIS
     Dosage: 20 MG, UNK
     Route: 048
     Dates: start: 20170619, end: 201708
  10. ACETYLSALICYLIC ACID({=100 MG) [Suspect]
     Active Substance: ASPIRIN
     Indication: ANGIOPATHY
     Dosage: 81 MG, QD
     Route: 065
     Dates: start: 20170410
  11. XARELTO [Suspect]
     Active Substance: RIVAROXABAN
     Indication: CEREBROVASCULAR ACCIDENT PROPHYLAXIS
     Dosage: 10 MG, QD
     Route: 048
     Dates: start: 20170518
  12. XARELTO [Suspect]
     Active Substance: RIVAROXABAN
     Indication: CEREBROVASCULAR ACCIDENT PROPHYLAXIS
     Dosage: 15 MG, QD
     Route: 048
     Dates: start: 20170519

REACTIONS (1)
  - Gastrointestinal haemorrhage [Recovering/Resolving]

NARRATIVE: CASE EVENT DATE: 20170806
